FAERS Safety Report 14910885 (Version 4)
Quarter: 2018Q3

REPORT INFORMATION
  Report Type: Spontaneous
  Country: CN (occurrence: CN)
  Receive Date: 20180517
  Receipt Date: 20180906
  Transmission Date: 20181010
  Serious: Yes (Death, Hospitalization, Other)
  Sender: FDA-Public Use
  Company Number: CN-BEH-2018090533

PATIENT
  Age: 89 Year
  Sex: Female
  Weight: 45 kg

DRUGS (6)
  1. AMINO ACID [Concomitant]
     Active Substance: AMINO ACIDS
     Route: 065
  2. NUTRIENTS NOS [Concomitant]
     Active Substance: UNSPECIFIED INGREDIENT
     Route: 042
  3. ALBURX [Suspect]
     Active Substance: ALBUMIN HUMAN
     Indication: POSTOPERATIVE CARE
     Dosage: 10G/50ML, Q 3?5 DAYS
     Route: 051
     Dates: start: 201711, end: 201805
  4. ALBURX [Suspect]
     Active Substance: ALBUMIN HUMAN
     Indication: IMMUNODEFICIENCY
     Dosage: 10G/50ML, Q 3?5 DAYS
     Route: 051
     Dates: start: 201805
  5. ALBURX [Suspect]
     Active Substance: ALBUMIN HUMAN
     Dosage: 10 G/50 ML, QD
     Route: 065
  6. FRUCTOSE [Concomitant]
     Active Substance: FRUCTOSE
     Route: 051

REACTIONS (21)
  - Asthenia [Unknown]
  - Heart rate increased [Unknown]
  - Gait disturbance [Unknown]
  - Food refusal [Unknown]
  - Pyrexia [Unknown]
  - Dysphagia [Unknown]
  - Speech disorder [Unknown]
  - Epilepsy [Fatal]
  - Hypoproteinaemia [Unknown]
  - Sputum increased [Unknown]
  - Drug ineffective for unapproved indication [Unknown]
  - Dyspnoea [Fatal]
  - Pyrexia [Unknown]
  - Lung infection [Unknown]
  - Electrolyte imbalance [Unknown]
  - Decreased appetite [Unknown]
  - Lethargy [Unknown]
  - Pericardial effusion [Unknown]
  - Protein total decreased [Unknown]
  - Malnutrition [Unknown]
  - Nutritional condition abnormal [Unknown]

NARRATIVE: CASE EVENT DATE: 201806
